FAERS Safety Report 23954030 (Version 1)
Quarter: 2024Q2

REPORT INFORMATION
  Report Type: Spontaneous
  Country: US (occurrence: None)
  Receive Date: 20240609
  Receipt Date: 20240609
  Transmission Date: 20240716
  Serious: No
  Sender: FDA-Public Use
  Company Number: US-ROCHE-3454005

PATIENT
  Age: 44 Year
  Sex: Female
  Weight: 105 kg

DRUGS (1)
  1. TENECTEPLASE [Suspect]
     Active Substance: TENECTEPLASE
     Indication: Ischaemic stroke
     Dosage: (0.25 MG/KG)
     Route: 042

REACTIONS (3)
  - Off label use [Unknown]
  - Overdose [Unknown]
  - No adverse event [Unknown]
